FAERS Safety Report 6268567-9 (Version None)
Quarter: 2009Q3

REPORT INFORMATION
  Report Type: 
  Country: None (occurrence: None)
  Receive Date: 20090715
  Receipt Date: 20090406
  Transmission Date: 20100115
  Serious: No
  Sender: FDA-Public Use
  Company Number: US-BAYER-200917716NA

PATIENT
  Age: 46 Year
  Sex: Female
  Weight: 57 kg

DRUGS (2)
  1. YAZ [Suspect]
     Indication: UTERINE HAEMORRHAGE
     Route: 048
     Dates: start: 20080101
  2. CELEBREX [Concomitant]
     Indication: HAEMORRHAGIC CYST
     Dosage: 3MG/0.02MG
     Route: 048

REACTIONS (4)
  - ABDOMINAL DISTENSION [None]
  - FATIGUE [None]
  - MUSCLE SPASMS [None]
  - NO ADVERSE EVENT [None]
